FAERS Safety Report 9904693 (Version 1)
Quarter: 2014Q1

REPORT INFORMATION
  Report Type: Report from Study
  Country: CA (occurrence: CA)
  Receive Date: 20140218
  Receipt Date: 20140218
  Transmission Date: 20141002
  Serious: Yes (Other)
  Sender: FDA-Public Use
  Company Number: CA-JNJFOC-20140207742

PATIENT
  Age: 29 Year
  Sex: Male
  Weight: 83.4 kg

DRUGS (3)
  1. SIMPONI [Suspect]
     Indication: CROHN^S DISEASE
     Dosage: WEEK 0
     Route: 058
     Dates: start: 20131227
  2. SIMPONI [Suspect]
     Indication: CROHN^S DISEASE
     Route: 058
  3. SIMPONI [Suspect]
     Indication: CROHN^S DISEASE
     Dosage: WEEK 2
     Route: 058
     Dates: start: 201401

REACTIONS (2)
  - Staphylococcal infection [Unknown]
  - Off label use [Unknown]
